FAERS Safety Report 4705223-X (Version None)
Quarter: 2005Q2

REPORT INFORMATION
  Report Type: 
  Country: None (occurrence: None)
  Receive Date: 20050628
  Receipt Date: 20040826
  Transmission Date: 20051028
  Serious: Yes (Hospitalization)
  Sender: FDA-Public Use
  Company Number: 24966

PATIENT
  Age: 74 Year
  Sex: Female

DRUGS (4)
  1. FLECAINIDE ACETATE [Suspect]
     Dosage: ORAL
     Route: 048
     Dates: start: 20031206, end: 20031215
  2. BEFIZAL           (BEZAFIBRATE) [Suspect]
     Dosage: ORAL
     Route: 048
     Dates: end: 20031215
  3. COAPROVEL              (IRBESARTAN, HYDROCHLOROTHIAZIDE) [Suspect]
     Dosage: ORAL
     Route: 048
     Dates: start: 20031206, end: 20031215
  4. ALLOPURINOL [Suspect]
     Dosage: ORAL
     Route: 048
     Dates: end: 20031215

REACTIONS (4)
  - ANAEMIA [None]
  - GAMMA-GLUTAMYLTRANSFERASE INCREASED [None]
  - PANCREATITIS ACUTE [None]
  - SYSTEMIC INFLAMMATORY RESPONSE SYNDROME [None]
